FAERS Safety Report 9901926 (Version 2)
Quarter: 2014Q1

REPORT INFORMATION
  Report Type: Spontaneous
  Country: US (occurrence: US)
  Receive Date: 20140217
  Receipt Date: 20140217
  Transmission Date: 20141002
  Serious: No
  Sender: FDA-Public Use
  Company Number: US-GILEAD-2011-0045394

PATIENT
  Age: 74 Year
  Sex: Female

DRUGS (12)
  1. LETAIRIS [Suspect]
     Indication: PULMONARY HYPERTENSION
     Dosage: 5 MG, UNK
     Route: 048
     Dates: start: 20110825
  2. LETAIRIS [Suspect]
     Indication: BRONCHIECTASIS
  3. LETAIRIS [Suspect]
     Indication: UNEVALUABLE EVENT
  4. ADVAIR [Concomitant]
  5. CIALIS [Concomitant]
  6. GUAIFENESIN [Concomitant]
  7. SPIRIVA [Concomitant]
  8. SPIRONOLACTONE [Concomitant]
  9. TOBI [Concomitant]
  10. TORSEMIDE [Concomitant]
  11. WARFARIN [Concomitant]
  12. VITAMIN K+D [Concomitant]

REACTIONS (3)
  - Muscle spasms [Unknown]
  - Pain in extremity [Unknown]
  - Local swelling [Unknown]
